FAERS Safety Report 17257732 (Version 1)
Quarter: 2020Q1

REPORT INFORMATION
  Report Type: Spontaneous
  Country: BE (occurrence: BE)
  Receive Date: 20200110
  Receipt Date: 20200110
  Transmission Date: 20200409
  Serious: Yes (Other)
  Sender: FDA-Public Use
  Company Number: BE-MYLANLABS-2020M1002409

PATIENT
  Age: 54 Year
  Sex: Male

DRUGS (1)
  1. PANTOPRAZOLE [Suspect]
     Active Substance: PANTOPRAZOLE
     Indication: PRODUCT USED FOR UNKNOWN INDICATION
     Dosage: 160 MG, QD (80 MG, BID)
     Route: 065

REACTIONS (4)
  - Paraesthesia oral [Unknown]
  - Vomiting [Unknown]
  - Hypomagnesaemia [Recovered/Resolved]
  - Myalgia [Unknown]
